FAERS Safety Report 4873215-6 (Version None)
Quarter: 2006Q1

REPORT INFORMATION
  Report Type: 
  Country: None (occurrence: None)
  Receive Date: 20060105
  Receipt Date: 20051219
  Transmission Date: 20060701
  Serious: Yes (Death, Hospitalization, Disabling)
  Sender: FDA-Public Use
  Company Number: US-MERCK-0512USA03370

PATIENT
  Age: 56 Year
  Sex: Male
  Weight: 109 kg

DRUGS (12)
  1. VIOXX [Suspect]
     Indication: BACK PAIN
     Route: 048
     Dates: start: 20000929
  2. VIOXX [Suspect]
     Indication: PAIN IN EXTREMITY
     Route: 048
     Dates: start: 20000929
  3. ENALAPRIL MALEATE [Concomitant]
     Route: 065
  4. TIAZAC [Concomitant]
     Route: 065
  5. GLUCOTROL XL [Concomitant]
     Route: 065
  6. LESCOL [Concomitant]
     Route: 065
  7. LORTAB [Concomitant]
     Route: 065
  8. ASPIRIN [Concomitant]
     Route: 065
  9. PERCOCET [Concomitant]
     Route: 065
  10. SOMA [Concomitant]
     Route: 065
  11. VALIUM [Concomitant]
     Route: 065
  12. BACTROBAN [Concomitant]
     Route: 065

REACTIONS (2)
  - INTERVERTEBRAL DISC PROTRUSION [None]
  - MYOCARDIAL INFARCTION [None]
